FAERS Safety Report 21486739 (Version 2)
Quarter: 2022Q4

REPORT INFORMATION
  Report Type: Spontaneous
  Country: US (occurrence: US)
  Receive Date: 20221020
  Receipt Date: 20221108
  Transmission Date: 20230113
  Serious: Yes (Hospitalization)
  Sender: FDA-Public Use
  Company Number: US-TEVA-2022-US-2816605

PATIENT
  Age: 28 Year
  Sex: Male

DRUGS (4)
  1. GABAPENTIN [Suspect]
     Active Substance: GABAPENTIN
     Indication: Back pain
     Dosage: 900 MILLIGRAM DAILY; 3 TIMES PER DAY
     Route: 065
  2. GABAPENTIN [Suspect]
     Active Substance: GABAPENTIN
     Dosage: DOSE WAS GRADUALLY INCREASED OVER 4 WEEKS TO 1600 MG/DAY
     Route: 065
  3. ACETAMINOPHEN [Suspect]
     Active Substance: ACETAMINOPHEN
     Indication: Back pain
     Route: 065
  4. HYDROCODONE [Suspect]
     Active Substance: HYDROCODONE
     Indication: Back pain
     Route: 065

REACTIONS (6)
  - Depression [Recovered/Resolved]
  - Aggression [Recovered/Resolved]
  - Suicide attempt [Recovered/Resolved]
  - Personality change [Recovered/Resolved]
  - Drug ineffective [Unknown]
  - Off label use [Recovered/Resolved]
